FAERS Safety Report 9536438 (Version 1)
Quarter: 2013Q2

REPORT INFORMATION
  Report Type: Spontaneous
  Country: US (occurrence: None)
  Receive Date: 20130503
  Receipt Date: 20130503
  Transmission Date: 20140414
  Serious: Yes (Other)
  Sender: FDA-Public Use
  Company Number: 1000043201

PATIENT
  Age: 73 Year
  Sex: Female

DRUGS (7)
  1. DALIRESP [Suspect]
     Indication: CHRONIC OBSTRUCTIVE PULMONARY DISEASE
     Route: 048
     Dates: start: 20121207
  2. SINGULAR (MONTELUKAST SODIUM) [Concomitant]
  3. OMEPRAZOLE [Concomitant]
  4. VALSARTAN [Concomitant]
  5. MUCINEX (GUAIFENESIN) [Concomitant]
  6. BROVANA 9ARFORMOTEROL TARTRATE) [Concomitant]
  7. TIOTROPIUM BROMIDE [Concomitant]

REACTIONS (1)
  - Diarrhoea [None]
